FAERS Safety Report 9518320 (Version 1)
Quarter: 2013Q3

REPORT INFORMATION
  Report Type: Spontaneous
  Country: IT (occurrence: None)
  Receive Date: 20130910
  Receipt Date: 20130910
  Transmission Date: 20140515
  Serious: Yes (Hospitalization)
  Sender: FDA-Public Use
  Company Number: 2013SCDP000059

PATIENT
  Sex: Female

DRUGS (1)
  1. MEPIVACAINE HCL [Suspect]
     Indication: PRODUCT USED FOR UNKNOWN INDICATION

REACTIONS (3)
  - Clonus [None]
  - Vomiting [None]
  - Tremor [None]
